FAERS Safety Report 9057289 (Version 1)
Quarter: 2013Q1

REPORT INFORMATION
  Report Type: Report from Study
  Country: JP (occurrence: JP)
  Receive Date: 20130131
  Receipt Date: 20130131
  Transmission Date: 20140127
  Serious: Yes (Other)
  Sender: FDA-Public Use
  Company Number: JP-GLAXOSMITHKLINE-B0860706A

PATIENT
  Age: 56 None
  Sex: Female
  Weight: 55 kg

DRUGS (6)
  1. PYDOXAL [Concomitant]
     Indication: DRY SKIN PROPHYLAXIS
     Route: 048
     Dates: start: 20100812, end: 20101020
  2. KERATINAMIN [Concomitant]
     Indication: DRY SKIN PROPHYLAXIS
     Route: 061
     Dates: start: 20100908, end: 20101020
  3. GASTER D [Concomitant]
     Indication: GASTRITIS
     Route: 048
     Dates: start: 20100818, end: 20101020
  4. TYKERB [Suspect]
     Indication: BREAST CANCER
     Route: 048
     Dates: start: 20100812, end: 20101019
  5. XELODA [Suspect]
     Indication: BREAST CANCER
     Route: 048
     Dates: start: 20100812, end: 20101012
  6. JUVELA N [Concomitant]
     Indication: HYPERTENSION
     Route: 048

REACTIONS (4)
  - Gastric ulcer [Recovered/Resolved]
  - Diarrhoea [Recovered/Resolved]
  - Hand dermatitis [Recovered/Resolved]
  - Gastritis [Recovered/Resolved]
